FAERS Safety Report 22060926 (Version 4)
Quarter: 2024Q1

REPORT INFORMATION
  Report Type: Spontaneous
  Country: US (occurrence: US)
  Receive Date: 20230303
  Receipt Date: 20240227
  Transmission Date: 20240409
  Serious: Yes (Life-Threatening, Hospitalization, Disabling, Other)
  Sender: FDA-Public Use
  Company Number: US-PFIZER INC-PV202300039732

PATIENT
  Age: 60 Year
  Sex: Female
  Weight: 75.283 kg

DRUGS (3)
  1. INLYTA [Suspect]
     Active Substance: AXITINIB
     Indication: Renal cell carcinoma
     Dosage: UNK (TAKEN A TOTAL OF 7 OR 8 DOSES)
     Dates: start: 20230216, end: 20230224
  2. INLYTA [Suspect]
     Active Substance: AXITINIB
     Dosage: 5 MG, 2X/DAY
     Route: 048
     Dates: start: 20230213
  3. INLYTA [Suspect]
     Active Substance: AXITINIB
     Dosage: 5 MG (LAST DOSE WAS 16NOV2023)
     Route: 048
     Dates: end: 20231116

REACTIONS (7)
  - Volvulus [Recovered/Resolved with Sequelae]
  - Small intestinal resection [Recovered/Resolved with Sequelae]
  - Ileostomy [Recovered/Resolved with Sequelae]
  - Impaired healing [Recovered/Resolved with Sequelae]
  - Diarrhoea [Recovered/Resolved]
  - Nausea [Recovered/Resolved]
  - Vomiting [Recovered/Resolved]

NARRATIVE: CASE EVENT DATE: 20230201
